FAERS Safety Report 4770722-1 (Version None)
Quarter: 2005Q3

REPORT INFORMATION
  Report Type: 
  Country: None (occurrence: None)
  Receive Date: 20050915
  Receipt Date: 20040820
  Transmission Date: 20060218
  Serious: Yes (Other)
  Sender: FDA-Public Use
  Company Number: 2004AP04380

PATIENT
  Age: 28225 Day
  Sex: Male

DRUGS (12)
  1. IRESSA [Suspect]
     Indication: NON-SMALL CELL LUNG CANCER
     Route: 048
     Dates: start: 20040310, end: 20040818
  2. CORDARONE [Concomitant]
     Indication: VENTRICULAR FIBRILLATION
     Dates: start: 20030225
  3. ASPIRIN [Concomitant]
     Indication: VENTRICULAR FIBRILLATION
     Dates: start: 20030901
  4. DAFELGAN-PARACETAMOL [Concomitant]
     Indication: PAIN
     Dates: start: 20031001
  5. ZURCALE [Concomitant]
     Indication: OESOPHAGITIS
     Dates: start: 20030917
  6. IMODIUM [Concomitant]
     Indication: DIARRHOEA
     Dates: start: 20040310
  7. LORMETAZEPAM [Concomitant]
     Indication: INSOMNIA
  8. REMERGON [Concomitant]
     Indication: DEPRESSION
  9. GEMCITABINE [Concomitant]
     Indication: CHEMOTHERAPY
  10. PLATINOL [Concomitant]
     Indication: CHEMOTHERAPY
  11. TAXOTERE [Concomitant]
     Indication: CHEMOTHERAPY
  12. RADIOTHERAPY [Concomitant]

REACTIONS (3)
  - CORNEAL EROSION [None]
  - DISEASE PROGRESSION [None]
  - PAPILLOEDEMA [None]
